FAERS Safety Report 4667561-9 (Version None)
Quarter: 2005Q2

REPORT INFORMATION
  Report Type: 
  Country: None (occurrence: None)
  Receive Date: 20050520
  Receipt Date: 20041117
  Transmission Date: 20051028
  Serious: Yes (Other)
  Sender: FDA-Public Use
  Company Number: PHEH2004US12445

PATIENT
  Age: 70 Year
  Sex: Female

DRUGS (8)
  1. SYNTHROID [Concomitant]
  2. ELAVIL [Concomitant]
  3. ZOLOFT [Concomitant]
  4. RADIATION THERAPY [Concomitant]
     Dates: start: 19981001, end: 19981101
  5. FEMARA [Concomitant]
     Indication: BREAST CANCER METASTATIC
     Dosage: 2.5 MG, QD
     Dates: start: 20011121, end: 20040201
  6. FASLODEX [Concomitant]
     Indication: BREAST CANCER METASTATIC
     Dates: start: 20040331, end: 20040723
  7. TAXOTERE [Concomitant]
     Indication: BREAST CANCER METASTATIC
     Dates: start: 20040823
  8. ZOMETA [Suspect]
     Indication: BREAST CANCER METASTATIC
     Dosage: 4 MG, QMO
     Dates: start: 20020313, end: 20041020

REACTIONS (12)
  - ACTINOMYCOSIS [None]
  - BONE DEBRIDEMENT [None]
  - EXCESSIVE GRANULATION TISSUE [None]
  - FISTULA [None]
  - GINGIVAL SWELLING [None]
  - IMPAIRED HEALING [None]
  - OSTEOMYELITIS [None]
  - OSTEONECROSIS [None]
  - PERIODONTAL DISEASE [None]
  - PRIMARY SEQUESTRUM [None]
  - PURULENT DISCHARGE [None]
  - TOOTH EXTRACTION [None]
